FAERS Safety Report 5225582-1 (Version None)
Quarter: 2007Q1

REPORT INFORMATION
  Report Type: 
  Country: None (occurrence: None)
  Receive Date: 20070131
  Receipt Date: 20070103
  Transmission Date: 20070707
  Serious: Yes (Other)
  Sender: FDA-Public Use
  Company Number: GB-PFIZER INC-2006152305

PATIENT
  Age: 75 Year
  Sex: Male
  Weight: 92.5 kg

DRUGS (4)
  1. VIAGRA [Suspect]
     Indication: ERECTILE DYSFUNCTION
     Route: 048
  2. CANDESARTAN [Concomitant]
     Route: 048
  3. BUMETANIDE [Concomitant]
     Route: 048
  4. ACETYLSALICYLIC ACID [Concomitant]
     Route: 048

REACTIONS (5)
  - DRUG INEFFECTIVE [None]
  - FLUSHING [None]
  - HEADACHE [None]
  - PULMONARY OEDEMA [None]
  - VENTRICULAR EXTRASYSTOLES [None]
